FAERS Safety Report 6330420-X (Version None)
Quarter: 2009Q3

REPORT INFORMATION
  Report Type: 
  Country: None (occurrence: None)
  Receive Date: 20090826
  Receipt Date: 20090826
  Transmission Date: 20100115
  Serious: Yes (Hospitalization)
  Sender: FDA-Public Use
  Company Number: None

PATIENT
  Sex: Male
  Weight: 100.5 kg

DRUGS (1)
  1. TEMOZOLOMIDE [Suspect]
     Dosage: 2250 MG

REACTIONS (13)
  - BLOOD CALCIUM DECREASED [None]
  - COMMUNICATION DISORDER [None]
  - DECREASED APPETITE [None]
  - DISEASE PROGRESSION [None]
  - DYSPNOEA [None]
  - FLUID INTAKE REDUCED [None]
  - GLASGOW COMA SCALE ABNORMAL [None]
  - HAEMOGLOBIN DECREASED [None]
  - MENTAL STATUS CHANGES [None]
  - PAIN [None]
  - SPEECH DISORDER [None]
  - TACHYPNOEA [None]
  - WEIGHT BEARING DIFFICULTY [None]
